FAERS Safety Report 6567933-1 (Version None)
Quarter: 2010Q1

REPORT INFORMATION
  Report Type: 
  Country: None (occurrence: None)
  Receive Date: 20100203
  Receipt Date: 20100126
  Transmission Date: 20100710
  Serious: Yes (Other)
  Sender: FDA-Public Use
  Company Number: US-JNJFOC-20061102455

PATIENT
  Sex: Female
  Weight: 98.88 kg

DRUGS (4)
  1. RISPERDAL [Suspect]
     Indication: HALLUCINATION
  2. RISPERDAL [Suspect]
     Indication: AFFECTIVE DISORDER
  3. RISPERDAL [Suspect]
     Indication: MENTAL DISORDER
  4. RISEPRDONE SOLUTION [Suspect]
     Indication: DRUG USE FOR UNKNOWN INDICATION
     Route: 048

REACTIONS (1)
  - TYPE 2 DIABETES MELLITUS [None]
